FAERS Safety Report 12761569 (Version 1)
Quarter: 2016Q3

REPORT INFORMATION
  Report Type: Spontaneous
  Country: US (occurrence: US)
  Receive Date: 20160920
  Receipt Date: 20160920
  Transmission Date: 20161109
  Serious: Yes (Other)
  Sender: FDA-Public Use
  Company Number: US-009507513-1609USA007101

PATIENT
  Sex: Female
  Weight: 108.8 kg

DRUGS (10)
  1. EYLEA [Suspect]
     Active Substance: AFLIBERCEPT
     Dosage: 2 MG (PRESUMED) RIGHT EYE (OD), ONCE MONTHLY FOR 3 INJECTIONS THEN EVERY 2 MONTHS, INTRAOCULAR
     Route: 031
     Dates: start: 20160719, end: 20160719
  2. GABAPENTIN. [Suspect]
     Active Substance: GABAPENTIN
     Indication: SPINAL COLUMN STENOSIS
     Dosage: UNK UNK, QD
     Dates: start: 201601, end: 201602
  3. GABAPENTIN. [Suspect]
     Active Substance: GABAPENTIN
     Dosage: UNK
     Dates: start: 20160703, end: 201607
  4. SPIRIVA [Suspect]
     Active Substance: TIOTROPIUM BROMIDE MONOHYDRATE
     Indication: PRODUCT USED FOR UNKNOWN INDICATION
     Dosage: UNK, QD
  5. ZETIA [Concomitant]
     Active Substance: EZETIMIBE
  6. ZYRTEC [Suspect]
     Active Substance: CETIRIZINE HYDROCHLORIDE
     Indication: PRODUCT USED FOR UNKNOWN INDICATION
     Dosage: 10 MG, QD
  7. EYLEA [Suspect]
     Active Substance: AFLIBERCEPT
     Indication: NEOVASCULAR AGE-RELATED MACULAR DEGENERATION
     Dosage: 2 MG, UNK
     Route: 031
     Dates: start: 20160524
  8. HYZAAR [Concomitant]
     Active Substance: HYDROCHLOROTHIAZIDE\LOSARTAN POTASSIUM
  9. PROVENTIL [Suspect]
     Active Substance: ALBUTEROL
     Indication: PRODUCT USED FOR UNKNOWN INDICATION
     Dosage: 180 MICROGRAM, AS NECESSARY
  10. EYLEA [Suspect]
     Active Substance: AFLIBERCEPT
     Dosage: 2 MG (PRESUMED) RIGHT EYE (OD), ONCE MONTHLY FOR 3 INJECTIONS THEN EVERY 2 MONTHS, INTRAOCULAR
     Route: 031
     Dates: start: 20160621, end: 20160621

REACTIONS (4)
  - Eosinophil count increased [Unknown]
  - Pulmonary function test decreased [Unknown]
  - Transient ischaemic attack [Unknown]
  - Asthma [Unknown]

NARRATIVE: CASE EVENT DATE: 2015
